FAERS Safety Report 13212948 (Version 1)
Quarter: 2017Q1

REPORT INFORMATION
  Report Type: Spontaneous
  Country: US (occurrence: US)
  Receive Date: 20170209
  Receipt Date: 20170209
  Transmission Date: 20170428
  Serious: No
  Sender: FDA-Public Use
  Company Number: US-ALLERGAN-1672928US

PATIENT
  Sex: Female

DRUGS (7)
  1. BOTOX COSMETIC [Suspect]
     Active Substance: ONABOTULINUMTOXINA
     Dosage: 10 UNITS, SINGLE
     Route: 030
     Dates: start: 20160922, end: 20160922
  2. BOTOX COSMETIC [Suspect]
     Active Substance: ONABOTULINUMTOXINA
     Dosage: 2 UNITS, SINGLE
     Route: 030
     Dates: start: 20160922, end: 20160922
  3. WELLBUTRIN [Concomitant]
     Active Substance: BUPROPION HYDROCHLORIDE
     Dosage: UNK
  4. BOTOX COSMETIC [Suspect]
     Active Substance: ONABOTULINUMTOXINA
     Indication: SKIN WRINKLING
     Dosage: 2 UNITS, SINGLE
     Route: 030
     Dates: start: 20160513, end: 20160513
  5. BOTOX COSMETIC [Suspect]
     Active Substance: ONABOTULINUMTOXINA
     Indication: SKIN WRINKLING
     Dosage: 9 UNITS, SINGLE
     Route: 030
     Dates: start: 20160513, end: 20160513
  6. BOTOX COSMETIC [Suspect]
     Active Substance: ONABOTULINUMTOXINA
     Indication: SKIN WRINKLING
     Dosage: 10 UNITS, SINGLE
     Route: 030
     Dates: start: 20160513, end: 20160513
  7. BOTOX COSMETIC [Suspect]
     Active Substance: ONABOTULINUMTOXINA
     Dosage: 9 UNITS, SINGLE
     Route: 030
     Dates: start: 20160922, end: 20160922

REACTIONS (1)
  - Therapeutic response decreased [Unknown]
